FAERS Safety Report 20002377 (Version 1)
Quarter: 2021Q4

REPORT INFORMATION
  Report Type: Spontaneous
  Country: US (occurrence: US)
  Receive Date: 20211027
  Receipt Date: 20211027
  Transmission Date: 20220303
  Serious: Yes (Other)
  Sender: FDA-Public Use
  Company Number: US-TARO-2020TAR01785

PATIENT

DRUGS (2)
  1. PHENYTOIN SODIUM EXTENDED [Suspect]
     Active Substance: PHENYTOIN SODIUM
     Indication: Generalised tonic-clonic seizure
     Dosage: 300-400 MG PROLONG RWLEASE CAPSULE BY MOUTH EACH NIGHT
     Route: 048
     Dates: start: 2016
  2. DILANTIN [Suspect]
     Active Substance: PHENYTOIN
     Indication: Generalised tonic-clonic seizure
     Dosage: UNK
     Route: 065
     Dates: start: 2011

REACTIONS (5)
  - Drug ineffective [Unknown]
  - Drug level fluctuating [Unknown]
  - Product administration error [Unknown]
  - Intentional product misuse [Unknown]
  - Expired product administered [Unknown]
